FAERS Safety Report 18174039 (Version 1)
Quarter: 2020Q3

REPORT INFORMATION
  Report Type: Spontaneous
  Country: US (occurrence: US)
  Receive Date: 20200819
  Receipt Date: 20200819
  Transmission Date: 20201103
  Serious: Yes (Other)
  Sender: FDA-Public Use
  Company Number: None

PATIENT
  Age: 58 Year
  Sex: Male

DRUGS (11)
  1. HYDROCORTISONE 2.5% CREAM TWICE DAILY [Concomitant]
  2. ALBUTEROL INHALER AS NEEDED [Concomitant]
  3. FLUOCINOLONE OTIC OIL AS NEEDED FOR RASH [Concomitant]
  4. PROPRANOLOL LA 160 MG ONCE DAILY [Concomitant]
  5. HUMIRA [Suspect]
     Active Substance: ADALIMUMAB
     Indication: PSORIASIS
     Dosage: ?          OTHER FREQUENCY:EVERY 14 DAYS;?
     Route: 058
     Dates: start: 20130821, end: 20141201
  6. ASPIRIN 81 MG ONCE DAILY [Concomitant]
  7. FEXOFENADINE 180 MG ONCE DAILY [Concomitant]
  8. ADAPALENE 0.3% GEL [Concomitant]
  9. SULFASALAZINE 1500 MG ONCE DAILY [Concomitant]
     Dates: start: 20130211, end: 20141201
  10. SUMATRIPTAN 100 MG AS NEEDED [Concomitant]
  11. NAPROXEN 220 MG TWICE DAILY [Concomitant]

REACTIONS (2)
  - Rectal cancer [None]
  - Skin cancer [None]

NARRATIVE: CASE EVENT DATE: 20170401
